FAERS Safety Report 5613725-7 (Version None)
Quarter: 2008Q1

REPORT INFORMATION
  Report Type: 
  Country: None (occurrence: None)
  Receive Date: 20080205
  Receipt Date: 20080123
  Transmission Date: 20080703
  Serious: Yes (Other)
  Sender: FDA-Public Use
  Company Number: US-PFIZER INC-2008008937

PATIENT
  Sex: Female
  Weight: 55.9 kg

DRUGS (11)
  1. CHANTIX [Suspect]
     Indication: SMOKING CESSATION THERAPY
     Route: 048
  2. ALBUTEROL [Concomitant]
  3. ADVAIR DISKUS 100/50 [Concomitant]
  4. GABAPENTIN [Concomitant]
  5. LYRICA [Concomitant]
  6. FIORINAL [Concomitant]
  7. NICOTROL [Concomitant]
  8. VITAMIN B [Concomitant]
  9. ASCORBIC ACID [Concomitant]
  10. CALCIUM WITH VITAMIN D [Concomitant]
  11. MAGNESIUM [Concomitant]

REACTIONS (14)
  - ABDOMINAL DISTENSION [None]
  - ABNORMAL DREAMS [None]
  - BACK PAIN [None]
  - CHEST PAIN [None]
  - COGNITIVE DISORDER [None]
  - CONVULSION [None]
  - HEADACHE [None]
  - HEART RATE IRREGULAR [None]
  - NAUSEA [None]
  - OEDEMA PERIPHERAL [None]
  - PSYCHOMOTOR HYPERACTIVITY [None]
  - URINE ANALYSIS ABNORMAL [None]
  - URINE OUTPUT DECREASED [None]
  - WEIGHT INCREASED [None]
